FAERS Safety Report 5243079-X (Version None)
Quarter: 2007Q1

REPORT INFORMATION
  Report Type: 
  Country: None (occurrence: None)
  Receive Date: 20070221
  Receipt Date: 20070219
  Transmission Date: 20070707
  Serious: Yes (Other)
  Sender: FDA-Public Use
  Company Number: US-ROXANE LABORATORIES, INC-2007-DE-01021GD

PATIENT
  Age: 10 Year
  Sex: Male

DRUGS (7)
  1. PREDNISONE 50MG TAB [Suspect]
     Indication: ASTHMA
     Dosage: 30 MG BID FOR 8 DAYS, THEN TAPERED OVER THE NEXT 7 DAYS
     Route: 048
  2. PREDNISONE 50MG TAB [Suspect]
     Route: 048
  3. FLUTICASONE PROPIONATE [Suspect]
     Indication: ASTHMA
     Route: 055
  4. FLUTICASONE PROPIONATE [Suspect]
     Route: 055
  5. TRIAMCINOLONE [Suspect]
     Indication: RHINITIS ALLERGIC
     Dosage: 1 SPRAY EACH NOSTRIL DAILY
     Route: 045
  6. SALMETEROL [Concomitant]
     Indication: ASTHMA
     Dosage: 2 PUFFS BID
     Route: 055
  7. MONTELUKAST SODIUM [Concomitant]
     Indication: ASTHMA

REACTIONS (3)
  - ACNE [None]
  - ADRENAL SUPPRESSION [None]
  - CUSHINGOID [None]
